FAERS Safety Report 6654344-3 (Version None)
Quarter: 2010Q1

REPORT INFORMATION
  Report Type: 
  Country: None (occurrence: None)
  Receive Date: 20100326
  Receipt Date: 20100318
  Transmission Date: 20100710
  Serious: Yes (Other)
  Sender: FDA-Public Use
  Company Number: US-JNJCH-2010006958

PATIENT
  Sex: Female
  Weight: 49.9 kg

DRUGS (10)
  1. SUDAFED 12 HOUR [Suspect]
     Indication: RHINORRHOEA
     Dosage: TEXT:1 TABLET ONCE
     Route: 048
  2. LOPRESSOR [Concomitant]
     Indication: HYPERTENSION
     Dosage: TEXT:50MG ONE TWICE A DAY
     Route: 065
  3. SYNTHROID [Concomitant]
     Indication: THYROID DISORDER
     Dosage: TEXT:ONE DAILY
     Route: 065
  4. CALCIUM MAGNESIUM ZINC [Concomitant]
     Indication: SUPPLEMENTATION THERAPY
     Dosage: TEXT:ONE TWICE A DAY
     Route: 065
  5. VITAMIN D [Concomitant]
     Indication: VITAMIN SUPPLEMENTATION
     Dosage: TEXT:ONE DAILY
     Route: 065
  6. LUTEIN [Concomitant]
     Indication: SUPPLEMENTATION THERAPY
     Dosage: TEXT:ONE DAILY
     Route: 065
  7. VITAMIN C [Concomitant]
     Indication: VITAMIN SUPPLEMENTATION
     Dosage: TEXT:ONE DAILY
     Route: 065
  8. ACIDOPHILUS [Concomitant]
     Indication: SUPPLEMENTATION THERAPY
     Dosage: TEXT:ONE DAILY
     Route: 065
  9. MULTIVITAMIN [Concomitant]
     Indication: VITAMIN SUPPLEMENTATION
     Dosage: TEXT:ONE DAILY
     Route: 065
  10. VITAMIN B-12 [Concomitant]
     Indication: VITAMIN SUPPLEMENTATION
     Dosage: TEXT:ONE DAILY
     Route: 065

REACTIONS (4)
  - AGITATION [None]
  - FEELING ABNORMAL [None]
  - GAIT DISTURBANCE [None]
  - VISION BLURRED [None]
